FAERS Safety Report 6125627-0 (Version None)
Quarter: 2009Q1

REPORT INFORMATION
  Report Type: 
  Country: None (occurrence: None)
  Receive Date: 20090320
  Receipt Date: 20090316
  Transmission Date: 20090719
  Serious: Yes (Life-Threatening)
  Sender: FDA-Public Use
  Company Number: DE-ASTRAZENECA-2009PK00881

PATIENT
  Age: 77 Year
  Sex: Male
  Weight: 83 kg

DRUGS (11)
  1. BELOC-ZOK [Interacting]
     Indication: HYPERTENSION
     Route: 048
     Dates: start: 19950101, end: 20090130
  2. ARCOXIA [Suspect]
     Indication: PAIN IN EXTREMITY
     Route: 048
     Dates: start: 20090123, end: 20090130
  3. GABAPENTIN [Suspect]
     Indication: PERIPHERAL ARTERIAL OCCLUSIVE DISEASE
     Route: 048
     Dates: start: 20090103, end: 20090130
  4. BENZBROMARONE AL [Interacting]
     Indication: GOUT
     Route: 048
     Dates: start: 20090103, end: 20090130
  5. BENAZEPRIL HYDROCHLORIDE [Interacting]
     Indication: HYPERTENSION
     Dosage: 20 MG /25 MG
     Route: 048
     Dates: start: 20080501, end: 20090130
  6. DIGITOXIN ^AWD^ [Interacting]
     Indication: ATRIAL FIBRILLATION
     Route: 048
     Dates: start: 20070401, end: 20090129
  7. VEROSPIRON [Interacting]
     Indication: OEDEMA PERIPHERAL
     Route: 048
     Dates: start: 20081201, end: 20090129
  8. XIPAMIDE [Interacting]
     Indication: HYPERTENSION
     Route: 048
     Dates: start: 20081201, end: 20090129
  9. TORASEMIDE [Interacting]
     Indication: RENAL IMPAIRMENT
     Route: 048
     Dates: start: 20090125
  10. FALITHROM [Concomitant]
     Indication: ATRIAL FIBRILLATION
     Route: 048
     Dates: start: 19960101, end: 20090130
  11. LOVASTATIN [Concomitant]
     Indication: DYSLIPIDAEMIA
     Route: 048
     Dates: start: 20070401, end: 20090129

REACTIONS (2)
  - DRUG INTERACTION [None]
  - RENAL FAILURE ACUTE [None]
